FAERS Safety Report 21891225 (Version 2)
Quarter: 2023Q1

REPORT INFORMATION
  Report Type: Other
  Country: ID (occurrence: ID)
  Receive Date: 20230120
  Receipt Date: 20230131
  Transmission Date: 20230417
  Serious: Yes (Hospitalization)
  Sender: FDA-Public Use
  Company Number: ID-ALVOGEN-2023088992

PATIENT
  Age: 33 Year
  Sex: Male

DRUGS (8)
  1. CLINDAMYCIN [Suspect]
     Active Substance: CLINDAMYCIN
     Indication: Toxoplasmosis
  2. GABAPENTIN [Suspect]
     Active Substance: GABAPENTIN
     Indication: Product used for unknown indication
  3. SULFAMETHOXAZOLE\TRIMETHOPRIM [Suspect]
     Active Substance: SULFAMETHOXAZOLE\TRIMETHOPRIM
     Indication: Product used for unknown indication
  4. ISONIAZID [Suspect]
     Active Substance: ISONIAZID
     Indication: Tuberculosis
  5. RIFAMPIN [Suspect]
     Active Substance: RIFAMPIN
     Indication: Tuberculosis
  6. PYRAZINAMIDE [Suspect]
     Active Substance: PYRAZINAMIDE
     Indication: Tuberculosis
  7. ETHAMBUTOL [Suspect]
     Active Substance: ETHAMBUTOL HYDROCHLORIDE
     Indication: Tuberculosis
  8. FOLIC ACID [Concomitant]
     Active Substance: FOLIC ACID
     Indication: Product used for unknown indication

REACTIONS (7)
  - Petechiae [Recovered/Resolved]
  - Macule [Recovered/Resolved]
  - Purpura [Recovered/Resolved]
  - Immune thrombocytopenia [Unknown]
  - Eczema [Recovered/Resolved]
  - Pancytopenia [Unknown]
  - Pigmentation disorder [Recovered/Resolved]
